FAERS Safety Report 17818875 (Version 3)
Quarter: 2020Q3

REPORT INFORMATION
  Report Type: Report from Study
  Country: FR (occurrence: FR)
  Receive Date: 20200522
  Receipt Date: 20200723
  Transmission Date: 20201102
  Serious: Yes (Death, Hospitalization)
  Sender: FDA-Public Use
  Company Number: FR-ROCHE-2606116

PATIENT
  Age: 77 Year
  Sex: Female

DRUGS (5)
  1. CARBOPLATIN;GEMCITABINE [Concomitant]
     Dosage: DAY 1 CYCLE 1
     Dates: start: 20200430
  2. BEVACIZUMAB. [Suspect]
     Active Substance: BEVACIZUMAB
     Indication: OVARIAN CANCER
     Dosage: ON 18/MAR/2020 HE RECEIVED LAST DOSE OF BEVACIZUMAB (15 MG/KG).
     Route: 042
     Dates: start: 20181217
  3. LEVOTHYROX [Concomitant]
     Active Substance: LEVOTHYROXINE
  4. BLINDED ATEZOLIZUMAB [Suspect]
     Active Substance: ATEZOLIZUMAB
     Indication: OVARIAN CANCER
     Dosage: ON 18/MAR/2020 HE RECEIVED LAST DOSE OF ATEZOLIZUMAB (1200 MG).
     Route: 042
     Dates: start: 20181217
  5. RAMIPRIL. [Concomitant]
     Active Substance: RAMIPRIL

REACTIONS (1)
  - Cardiac dysfunction [Fatal]

NARRATIVE: CASE EVENT DATE: 20200515
